FAERS Safety Report 17367874 (Version 1)
Quarter: 2020Q1

REPORT INFORMATION
  Report Type: Spontaneous
  Country: IT (occurrence: IT)
  Receive Date: 20200204
  Receipt Date: 20200204
  Transmission Date: 20200409
  Serious: Yes (Other)
  Sender: FDA-Public Use
  Company Number: IT-AMGEN-ITASP2019046797

PATIENT
  Age: 69 Year
  Sex: Female
  Weight: 85 kg

DRUGS (9)
  1. NATECAL D3 [Concomitant]
     Active Substance: CALCIUM CARBONATE\CHOLECALCIFEROL
     Dosage: 600 MG 400 I.U.
  2. ALENDROS [Concomitant]
     Active Substance: ALENDRONATE SODIUM
     Dosage: UNK
  3. AMGEVITA [Suspect]
     Active Substance: ADALIMUMAB
     Indication: RHEUMATOID ARTHRITIS
  4. REUMAFLEX [Concomitant]
     Indication: POLYARTHRITIS
     Dosage: 50 MILLIGRAM PER MILLILITRE
     Route: 058
     Dates: start: 20181213
  5. AMGEVITA [Suspect]
     Active Substance: ADALIMUMAB
     Indication: POLYARTHRITIS
     Dosage: 40 MILLIGRAM, CYCLICAL
     Route: 058
     Dates: start: 20181210, end: 20190313
  6. AMGEVITA [Suspect]
     Active Substance: ADALIMUMAB
     Indication: ARTHRITIS
  7. LODOTRA [Concomitant]
     Active Substance: PREDNISONE
     Indication: POLYARTHRITIS
     Dosage: 2 MILLIGRAM
     Route: 048
  8. DIBASE [Concomitant]
     Active Substance: CHOLECALCIFEROL
     Dosage: 25.000 IU / 2, 5 ML
     Route: 048
  9. ANTRA [Concomitant]
     Active Substance: OMEPRAZOLE
     Dosage: 20 MILLIGRAM

REACTIONS (1)
  - Rheumatoid arthritis [Not Recovered/Not Resolved]

NARRATIVE: CASE EVENT DATE: 20181215
